FAERS Safety Report 8921438 (Version 1)
Quarter: 2012Q4

REPORT INFORMATION
  Report Type: 
  Country: GR (occurrence: GR)
  Receive Date: 20121122
  Receipt Date: 20121122
  Transmission Date: 20130627
  Serious: Yes (Other)
  Sender: FDA-Public Use
  Company Number: GR-AMGEN-GRCSP2012070025

PATIENT

DRUGS (4)
  1. VECTIBIX [Suspect]
     Indication: COLON CANCER
     Dosage: 3 mg/kg, qwk
     Route: 042
  2. VECTIBIX [Suspect]
     Dosage: 10 mg/kg, UNK
     Route: 042
  3. CAPECITABINE [Concomitant]
     Indication: COLON CANCER
     Dosage: 1600 mg/m2, UNK
     Route: 048
  4. CAPECITABINE [Concomitant]
     Dosage: 2200 mg/m2, qd
     Route: 048

REACTIONS (1)
  - Dermatitis acneiform [Unknown]
